FAERS Safety Report 14039889 (Version 2)
Quarter: 2017Q4

REPORT INFORMATION
  Report Type: Spontaneous
  Country: FI (occurrence: FI)
  Receive Date: 20171004
  Receipt Date: 20171025
  Transmission Date: 20180321
  Serious: Yes (Hospitalization, Disabling, Other)
  Sender: FDA-Public Use
  Company Number: FI-B.I. PHARMACEUTICALS,INC./RIDGEFIELD-2017-BI-052953

PATIENT
  Age: 83 Year
  Sex: Male

DRUGS (5)
  1. ATORVASTATIN ORION  10 MG [Concomitant]
     Indication: HYPERCHOLESTEROLAEMIA
     Dates: start: 20091013
  2. JANUMET [Concomitant]
     Active Substance: METFORMIN HYDROCHLORIDE\SITAGLIPTIN PHOSPHATE
     Indication: DIABETES MELLITUS
     Dosage: STRENGTH/ UNIT DOSE: 50/1000 MILLIGRAM; DAILY DOSE: 100/2000 MILLIGRAM
     Route: 065
     Dates: start: 20100701
  3. PREDNISOLON 5 MG [Concomitant]
     Indication: MYALGIA
     Dates: start: 20151120
  4. JARDIANCE [Suspect]
     Active Substance: EMPAGLIFLOZIN
     Indication: TYPE 2 DIABETES MELLITUS
     Route: 048
     Dates: start: 20160920, end: 20170914
  5. THYROXIN 25 MIKROG [Concomitant]
     Indication: HYPOTHYROIDISM
     Dates: start: 20070308

REACTIONS (8)
  - Skin ulcer [Unknown]
  - Pain in extremity [Unknown]
  - Peripheral ischaemia [Recovered/Resolved]
  - Necrotising soft tissue infection [Unknown]
  - Gangrene [Recovered/Resolved]
  - Peripheral vascular disorder [Unknown]
  - Localised infection [Recovered/Resolved]
  - Neuropathy peripheral [Unknown]

NARRATIVE: CASE EVENT DATE: 201706
